FAERS Safety Report 5778779-6 (Version None)
Quarter: 2008Q2

REPORT INFORMATION
  Report Type: 
  Country: None (occurrence: None)
  Receive Date: 20080617
  Receipt Date: 20070829
  Transmission Date: 20081010
  Serious: No
  Sender: FDA-Public Use
  Company Number: 07-219

PATIENT
  Sex: Female
  Weight: 67.586 kg

DRUGS (6)
  1. METFORMIN HYDROCHLORIDE ER TABLETS, 500MG [Suspect]
     Indication: DIABETES MELLITUS
     Dosage: 2 TABLETS TWICE DAILY
     Dates: start: 20070801
  2. FEXOFENADINE [Concomitant]
  3. ACTOS [Concomitant]
  4. VYTORIN [Concomitant]
  5. FUROSEMIDE [Concomitant]
  6. SINGULAIR [Concomitant]

REACTIONS (5)
  - BLOOD GLUCOSE INCREASED [None]
  - DIARRHOEA [None]
  - MUSCLE SPASMS [None]
  - PHARMACEUTICAL PRODUCT COMPLAINT [None]
  - THERAPEUTIC RESPONSE UNEXPECTED WITH DRUG SUBSTITUTION [None]
